FAERS Safety Report 21886240 (Version 1)
Quarter: 2023Q1

REPORT INFORMATION
  Report Type: Spontaneous
  Country: US (occurrence: None)
  Receive Date: 20230119
  Receipt Date: 20230119
  Transmission Date: 20230417
  Serious: Yes (Life-Threatening, Hospitalization)
  Sender: FDA-Public Use
  Company Number: None

PATIENT
  Age: 82 Year
  Sex: Male
  Weight: 113.4 kg

DRUGS (18)
  1. HUMALOG [Suspect]
     Active Substance: INSULIN LISPRO
  2. Dexcom G6 [Concomitant]
  3. ALLOPURINOL [Concomitant]
     Active Substance: ALLOPURINOL
  4. AMLODIPINE [Concomitant]
     Active Substance: AMLODIPINE BESYLATE
  5. LOSARTAN [Concomitant]
     Active Substance: LOSARTAN
  6. METOPROLOL TARTRATE [Concomitant]
     Active Substance: METOPROLOL TARTRATE
  7. PANTOPRAZOLE [Concomitant]
     Active Substance: PANTOPRAZOLE
  8. POTASSIUM CHLORIDE [Concomitant]
     Active Substance: POTASSIUM CHLORIDE
  9. WARFARIN [Concomitant]
     Active Substance: WARFARIN
  10. PRAMIPEXOLE [Concomitant]
     Active Substance: PRAMIPEXOLE
  11. SIMVASTATIN [Concomitant]
     Active Substance: SIMVASTATIN
  12. BASAGLAR [Concomitant]
     Active Substance: INSULIN GLARGINE
  13. FUROSEMIDE [Concomitant]
     Active Substance: FUROSEMIDE
  14. HUMALOG [Concomitant]
     Active Substance: INSULIN LISPRO
  15. ERYTHROMYCIN [Concomitant]
     Active Substance: ERYTHROMYCIN
  16. CLOBETASOL PROPIONATE [Concomitant]
     Active Substance: CLOBETASOL PROPIONATE
  17. Ketoconazole, SHAMPOO 2% [Concomitant]
  18. TRIAMCINOLONE [Concomitant]
     Active Substance: TRIAMCINOLONE

REACTIONS (6)
  - Blood glucose increased [None]
  - Hyperhidrosis [None]
  - Vision blurred [None]
  - Balance disorder [None]
  - Blood glucose decreased [None]
  - Device malfunction [None]

NARRATIVE: CASE EVENT DATE: 20221024
